FAERS Safety Report 22981439 (Version 4)
Quarter: 2023Q4

REPORT INFORMATION
  Report Type: Report from Study
  Country: IE (occurrence: None)
  Receive Date: 20230925
  Receipt Date: 20231004
  Transmission Date: 20240110
  Serious: Yes (Hospitalization)
  Sender: FDA-Public Use
  Company Number: IE-Eisai Medical Research-EC-2023-149271

PATIENT
  Age: 75 Year
  Sex: Female
  Weight: 97.8 kg

DRUGS (21)
  1. LENVATINIB [Suspect]
     Active Substance: LENVATINIB
     Indication: Renal cell carcinoma
     Dosage: STARTING AT 20 MILLIGRAM, FLUCTUATED DOSE
     Route: 048
     Dates: start: 20130331, end: 20230917
  2. BELZUTIFAN [Suspect]
     Active Substance: BELZUTIFAN
     Indication: Renal cell carcinoma
     Dosage: STARTING AT 120 MILLIGRAM, FLUCTUATED DOSE
     Route: 048
     Dates: start: 20130331, end: 20230917
  3. PERINDOPRIL ARGININE [Concomitant]
     Active Substance: PERINDOPRIL ARGININE
     Dates: start: 19940201
  4. ACETAMINOPHEN [Concomitant]
     Active Substance: ACETAMINOPHEN
     Dates: start: 20221030
  5. PARAFFIN [Concomitant]
     Active Substance: PARAFFIN
     Dates: start: 20221201
  6. SENNOSIDES A AND B [Concomitant]
     Active Substance: SENNOSIDES A AND B
     Dates: start: 20230331
  7. CHLORPHENIRAMINE MALEATE [Concomitant]
     Active Substance: CHLORPHENIRAMINE MALEATE
     Dates: start: 20230408
  8. LANSOPRAZOLE [Concomitant]
     Active Substance: LANSOPRAZOLE
     Dates: start: 20230525
  9. PREGABALIN [Concomitant]
     Active Substance: PREGABALIN
     Dates: start: 20230525
  10. ORAMORPH SR SUSTAINED RELEASE [Concomitant]
     Active Substance: MORPHINE SULFATE
     Dates: start: 20230526
  11. MELATONIN [Concomitant]
     Active Substance: MELATONIN
     Dates: start: 20230526
  12. LACTULOSE [Concomitant]
     Active Substance: LACTULOSE
     Dates: start: 20230527
  13. FUROSEMIDE [Concomitant]
     Active Substance: FUROSEMIDE
     Dates: start: 20230604
  14. CYCLIZINE [Concomitant]
     Active Substance: CYCLIZINE
     Dates: start: 20230610
  15. ALUMINIUM HYDROXIDE;DIPHENHYDRAMINE;LIDOCAINE;MAGNESIUM HYDROXIDE [Concomitant]
     Dates: start: 20230728
  16. CEPHALEXIN [Concomitant]
     Active Substance: CEPHALEXIN
     Dates: start: 20230619
  17. MORPHINE SULFATE [Concomitant]
     Active Substance: MORPHINE SULFATE
     Dates: start: 20230619
  18. RIFAMPIN [Concomitant]
     Active Substance: RIFAMPIN
     Dates: start: 20230718
  19. MYCOSTATIN [Concomitant]
     Active Substance: NYSTATIN
     Dates: start: 20230728
  20. SODIUM CHLORIDE [Concomitant]
     Active Substance: SODIUM CHLORIDE
     Dates: start: 20230728
  21. GENTAMICIN [Concomitant]
     Active Substance: GENTAMICIN
     Dates: start: 20230904, end: 20230904

REACTIONS (1)
  - Urosepsis [Not Recovered/Not Resolved]

NARRATIVE: CASE EVENT DATE: 20230917
